FAERS Safety Report 14097552 (Version 5)
Quarter: 2017Q4

REPORT INFORMATION
  Report Type: Spontaneous
  Country: US (occurrence: US)
  Receive Date: 20171017
  Receipt Date: 20171207
  Transmission Date: 20180321
  Serious: No
  Sender: FDA-Public Use
  Company Number: US-PFIZER INC-2017445452

PATIENT
  Age: 69 Year
  Sex: Female

DRUGS (1)
  1. GENOTROPIN [Suspect]
     Active Substance: SOMATROPIN
     Dosage: 0.5 MG, DAILY

REACTIONS (4)
  - Injection site bruising [Unknown]
  - Device issue [Unknown]
  - Drug dose omission [Unknown]
  - Nasopharyngitis [Unknown]
